FAERS Safety Report 12592359 (Version 3)
Quarter: 2016Q3

REPORT INFORMATION
  Report Type: Report from Study
  Country: US (occurrence: US)
  Receive Date: 20160726
  Receipt Date: 20160907
  Transmission Date: 20161109
  Serious: Yes (Hospitalization)
  Sender: FDA-Public Use
  Company Number: US-EMD SERONO-E2B_80046268

PATIENT
  Sex: Female

DRUGS (1)
  1. REBIF [Suspect]
     Active Substance: INTERFERON BETA-1A
     Indication: MULTIPLE SCLEROSIS
     Route: 058
     Dates: start: 20160404, end: 20160627

REACTIONS (4)
  - Hallucination [Recovered/Resolved]
  - Mental status changes [Unknown]
  - Thinking abnormal [Recovered/Resolved]
  - Weight decreased [Unknown]
